FAERS Safety Report 7647719-7 (Version None)
Quarter: 2011Q3

REPORT INFORMATION
  Report Type: 
  Country: None (occurrence: None)
  Receive Date: 20110801
  Receipt Date: 20110801
  Transmission Date: 20111222
  Serious: Yes (Hospitalization)
  Sender: FDA-Public Use
  Company Number: None

PATIENT
  Age: 82 Year
  Sex: Female

DRUGS (2)
  1. DORIPENEM MONOHYDRATE [Suspect]
     Indication: SEPSIS
     Dosage: 500 MG
     Route: 042
     Dates: start: 20110212, end: 20110214
  2. DORIPENEM MONOHYDRATE [Suspect]
     Indication: PNEUMONIA
     Dosage: 500 MG
     Route: 042
     Dates: start: 20110212, end: 20110214

REACTIONS (1)
  - ANTICONVULSANT DRUG LEVEL BELOW THERAPEUTIC [None]
